FAERS Safety Report 16302837 (Version 2)
Quarter: 2019Q3

REPORT INFORMATION
  Report Type: Spontaneous
  Country: FR (occurrence: FR)
  Receive Date: 20190513
  Receipt Date: 20190830
  Transmission Date: 20191004
  Serious: Yes (Death)
  Sender: FDA-Public Use
  Company Number: FR-SUN PHARMACEUTICAL INDUSTRIES LTD-2019RR-207573

PATIENT
  Age: 57 Year
  Sex: Female
  Weight: 60 kg

DRUGS (7)
  1. THERALENE [Suspect]
     Active Substance: TRIMEPRAZINE
     Indication: BURNOUT SYNDROME
     Dosage: 30 GTT, DAILY
     Route: 048
     Dates: start: 201812
  2. DECONTRACTYL (MEPHENESINE\NICOTINATE DE METHYLE\PHENOBARBITAL) [Suspect]
     Active Substance: MEPHENESIN\METHYL NICOTINATE
     Indication: NECK PAIN
     Dosage: UNK
     Route: 048
     Dates: start: 2012
  3. VENLAFAXINE [Suspect]
     Active Substance: VENLAFAXINE HYDROCHLORIDE
     Indication: BURNOUT SYNDROME
     Dosage: 3 DOSAGE FORM, DAILY
     Route: 048
     Dates: start: 201812
  4. TIAPRIDE BASE [Suspect]
     Active Substance: TIAPRIDE HYDROCHLORIDE
     Indication: PRODUCT USED FOR UNKNOWN INDICATION
     Route: 048
  5. LORMETAZEPAM [Suspect]
     Active Substance: LORMETAZEPAM
     Indication: BURNOUT SYNDROME
     Dosage: 1 DOSAGE FORM, DAILY
     Route: 048
     Dates: start: 201812
  6. PRAZEPAM [Suspect]
     Active Substance: PRAZEPAM
     Indication: BURNOUT SYNDROME
     Dosage: 3 DOSAGE FORM, DAILY
     Route: 048
     Dates: start: 201812
  7. TERCIAN 25 MG, COMPRIME PELLICULE SECABLE [Suspect]
     Active Substance: CYAMEMAZINE
     Indication: BURNOUT SYNDROME
     Dosage: 2 DOSAGE FORM, DAILY
     Route: 048
     Dates: start: 201812

REACTIONS (5)
  - Poisoning deliberate [Fatal]
  - Depressed level of consciousness [Fatal]
  - Respiratory depression [Fatal]
  - Death [Fatal]
  - Aspiration [Fatal]

NARRATIVE: CASE EVENT DATE: 20190414
